FAERS Safety Report 7019809-3 (Version None)
Quarter: 2010Q3

REPORT INFORMATION
  Report Type: 
  Country: None (occurrence: None)
  Receive Date: 20100922
  Receipt Date: 20100914
  Transmission Date: 20110219
  Serious: Yes (Other)
  Sender: FDA-Public Use
  Company Number: 2010MA002650

PATIENT
  Age: 35 Year
  Sex: Female

DRUGS (13)
  1. SULFATRIM [Suspect]
     Indication: PNEUMOCYSTIS JIROVECI PNEUMONIA
     Dosage: 1800 MG;BID;IV
     Route: 042
     Dates: start: 20091129, end: 20091203
  2. LANSOPRAZOLE [Concomitant]
  3. CELL CEPT [Concomitant]
  4. FOLIC ACID [Concomitant]
  5. AMLODIPINE [Concomitant]
  6. IRBESARTAN [Concomitant]
  7. SODIUM BICARBONATE [Concomitant]
  8. PREDNISOLONE [Concomitant]
  9. CALCICHEW [Concomitant]
  10. ARANESP [Concomitant]
  11. SEVELAMER [Concomitant]
  12. CYCLOPHOSPHAMIDE [Concomitant]
  13. STEROIDS [Concomitant]

REACTIONS (3)
  - CONFUSIONAL STATE [None]
  - PARANOIA [None]
  - PSYCHOTIC DISORDER [None]
